FAERS Safety Report 8933811 (Version 1)
Quarter: 2012Q4

REPORT INFORMATION
  Report Type: 
  Country: FR (occurrence: FR)
  Receive Date: 20121129
  Receipt Date: 20121129
  Transmission Date: 20130627
  Serious: Yes (Hospitalization)
  Sender: FDA-Public Use
  Company Number: FR-ELI_LILLY_AND_COMPANY-FR201211004859

PATIENT
  Age: 26 Year
  Sex: Male

DRUGS (3)
  1. ZYPREXA [Suspect]
     Indication: PSYCHOTIC DISORDER
     Dosage: 10 mg, unknown
     Route: 048
     Dates: end: 20120528
  2. LYSANXIA [Concomitant]
     Indication: PSYCHOTIC DISORDER
     Dosage: 20 mg, qd
     Dates: end: 20120528
  3. ABILIFY [Concomitant]
     Indication: PSYCHOTIC DISORDER
     Dosage: 10 mg, unknown
     Dates: start: 20120411, end: 20120528

REACTIONS (3)
  - Bundle branch block right [Recovered/Resolved]
  - Sinus tachycardia [Recovered/Resolved]
  - Syncope [Recovered/Resolved]
